FAERS Safety Report 6662513-1 (Version None)
Quarter: 2010Q1

REPORT INFORMATION
  Report Type: 
  Country: None (occurrence: None)
  Receive Date: 20100329
  Receipt Date: 20100319
  Transmission Date: 20100710
  Serious: Yes (Hospitalization, Other)
  Sender: FDA-Public Use
  Company Number: 008689

PATIENT
  Sex: Male
  Weight: 82 kg

DRUGS (11)
  1. NEUPRO [Suspect]
     Indication: PARKINSON'S DISEASE
     Dosage: (2 MG QD TRANSDERMAL), (4 MG QD TRANSDERMAL), (6 MG QD TRANSDERMAL)
     Route: 062
     Dates: start: 20071022, end: 20071028
  2. NEUPRO [Suspect]
     Indication: PARKINSON'S DISEASE
     Dosage: (2 MG QD TRANSDERMAL), (4 MG QD TRANSDERMAL), (6 MG QD TRANSDERMAL)
     Route: 062
     Dates: start: 20071029, end: 20071105
  3. NEUPRO [Suspect]
     Indication: PARKINSON'S DISEASE
     Dosage: (2 MG QD TRANSDERMAL), (4 MG QD TRANSDERMAL), (6 MG QD TRANSDERMAL)
     Route: 062
     Dates: start: 20071106, end: 20071115
  4. NEUPRO [Suspect]
     Indication: PARKINSON'S DISEASE
     Dosage: (2 MG QD TRANSDERMAL), (4 MG QD TRANSDERMAL), (6 MG QD TRANSDERMAL)
     Route: 062
     Dates: start: 20071116, end: 20080724
  5. NEUPRO [Suspect]
     Indication: PARKINSON'S DISEASE
     Dosage: (2 MG QD TRANSDERMAL), (4 MG QD TRANSDERMAL), (6 MG QD TRANSDERMAL)
     Route: 062
     Dates: start: 20080725, end: 20100129
  6. STALEVO 100 [Suspect]
     Indication: PARKINSON'S DISEASE
     Dosage: (15/37.5 /200 MG THREE TIMES DAILY)
     Dates: start: 20090728
  7. DIOVAN HCT [Concomitant]
  8. OXYBUTYNIN [Concomitant]
  9. CITALOPRAM HYDROBROMIDE [Concomitant]
  10. EXELON [Concomitant]
  11. HYDROCHLOROTHIAZIDE [Concomitant]

REACTIONS (4)
  - AKINESIA [None]
  - CONDITION AGGRAVATED [None]
  - GAIT DISTURBANCE [None]
  - PARKINSON'S DISEASE [None]
